FAERS Safety Report 6940404-6 (Version None)
Quarter: 2010Q3

REPORT INFORMATION
  Report Type: 
  Country: None (occurrence: None)
  Receive Date: 20100825
  Receipt Date: 20100819
  Transmission Date: 20110219
  Serious: Yes (Life-Threatening)
  Sender: FDA-Public Use
  Company Number: CA-SANOFI-AVENTIS-2010SA049620

PATIENT
  Age: 75 Year
  Sex: Male
  Weight: 78 kg

DRUGS (17)
  1. APIDRA SOLOSTAR [Suspect]
     Indication: TYPE 2 DIABETES MELLITUS
     Route: 058
  2. SOLOSTAR [Suspect]
  3. LANTUS [Suspect]
     Indication: TYPE 2 DIABETES MELLITUS
     Route: 058
  4. SOLOSTAR [Suspect]
  5. ASPIRIN [Concomitant]
  6. METOPROLOL [Concomitant]
  7. ENALAPRIL [Concomitant]
  8. LEVOTHYROXINE SODIUM [Concomitant]
  9. GLYBURIDE [Concomitant]
  10. METFORMIN [Concomitant]
  11. ROSUVASTATIN CALCIUM [Concomitant]
  12. ZANTAC [Concomitant]
  13. VIADERM-KC [Concomitant]
  14. ALL OTHER THERAPEUTIC PRODUCTS [Concomitant]
  15. ARTHROTEC [Concomitant]
  16. NITROGLYCERIN [Concomitant]
  17. VITAMIN B-12 [Concomitant]

REACTIONS (5)
  - HYPOGLYCAEMIC UNCONSCIOUSNESS [None]
  - LOSS OF CONSCIOUSNESS [None]
  - MUSCULOSKELETAL PAIN [None]
  - NECK PAIN [None]
  - ROAD TRAFFIC ACCIDENT [None]
